FAERS Safety Report 5762703-6 (Version None)
Quarter: 2008Q2

REPORT INFORMATION
  Report Type: 
  Country: None (occurrence: None)
  Receive Date: 20080609
  Receipt Date: 20080527
  Transmission Date: 20081010
  Serious: Yes (Hospitalization)
  Sender: FDA-Public Use
  Company Number: ES-ROCHE-567058

PATIENT
  Age: 51 Year
  Sex: Male

DRUGS (4)
  1. CELLCEPT [Suspect]
     Route: 048
     Dates: start: 20071229
  2. BASILIXIMAB [Interacting]
     Route: 042
     Dates: start: 20080102, end: 20080205
  3. TACROLIMUS [Interacting]
     Route: 048
     Dates: start: 20071229
  4. PREDNISONE TAB [Interacting]
     Route: 048
     Dates: start: 20071229

REACTIONS (4)
  - ABDOMINAL PAIN UPPER [None]
  - CYTOMEGALOVIRUS INFECTION [None]
  - DRUG INTERACTION [None]
  - DUODENAL ULCER [None]
